FAERS Safety Report 5802534-1 (Version None)
Quarter: 2008Q3

REPORT INFORMATION
  Report Type: 
  Country: None (occurrence: None)
  Receive Date: 20080708
  Receipt Date: 20080626
  Transmission Date: 20090109
  Serious: Yes (Hospitalization)
  Sender: FDA-Public Use
  Company Number: US-JNJFOC-20080700059

PATIENT
  Sex: Male

DRUGS (7)
  1. RISPERDAL [Suspect]
     Route: 048
  2. RISPERDAL [Suspect]
     Route: 048
  3. RISPERDAL [Suspect]
     Route: 048
  4. RISPERDAL [Suspect]
     Indication: HUNTINGTON'S CHOREA
     Route: 048
  5. LOVOXIL [Concomitant]
     Route: 065
  6. PROZAC [Concomitant]
     Route: 065
  7. TRAZODONE HCL [Concomitant]
     Indication: SOMNOLENCE

REACTIONS (4)
  - ANTISOCIAL BEHAVIOUR [None]
  - ANXIETY [None]
  - DELUSION [None]
  - MENTAL IMPAIRMENT [None]
